FAERS Safety Report 6194608-3 (Version None)
Quarter: 2009Q2

REPORT INFORMATION
  Report Type: 
  Country: None (occurrence: None)
  Receive Date: 20090519
  Receipt Date: 20090511
  Transmission Date: 20091009
  Serious: Yes (Disabling)
  Sender: FDA-Public Use
  Company Number: PHHY2009GB18307

PATIENT
  Age: 70 Year
  Sex: Female
  Weight: 35 kg

DRUGS (4)
  1. ZOLEDRONIC ACID [Suspect]
     Indication: OSTEOPOROSIS
     Dosage: 2 MG
     Route: 042
     Dates: start: 20090226
  2. CO-AMILOFRUSE [Concomitant]
     Indication: PAIN
     Dosage: UNK
     Route: 048
  3. METOCLOPRAMIDE [Concomitant]
     Indication: PAIN
     Route: 048
  4. MEPERIDINE HCL [Concomitant]
     Indication: PAIN
     Dosage: 400 MG, QD

REACTIONS (3)
  - ARTHRALGIA [None]
  - JOINT SWELLING [None]
  - NAUSEA [None]
